FAERS Safety Report 21308984 (Version 7)
Quarter: 2023Q1

REPORT INFORMATION
  Report Type: Report from Study
  Country: US (occurrence: US)
  Receive Date: 20220908
  Receipt Date: 20230329
  Transmission Date: 20230418
  Serious: Yes (Other)
  Sender: FDA-Public Use
  Company Number: US-XERIS PHARMACEUTICALS-2022XER00317

PATIENT
  Sex: Female

DRUGS (2)
  1. RECORLEV [Suspect]
     Active Substance: LEVOKETOCONAZOLE
     Indication: Cushing^s syndrome
     Dosage: 1 TABLET (150 MG), 2X/DAY AS DIRECTED
     Route: 048
     Dates: start: 20220819
  2. UNSPECIFIED ECZEMA MEDICATIONS [Concomitant]

REACTIONS (34)
  - Unresponsive to stimuli [Recovered/Resolved]
  - Loss of consciousness [Recovered/Resolved]
  - Dyspnoea [Recovered/Resolved]
  - Shock [Recovered/Resolved]
  - Vomiting [Unknown]
  - Nausea [Unknown]
  - Hypokalaemia [Recovered/Resolved]
  - Anaphylactic reaction [Recovered/Resolved]
  - COVID-19 [Unknown]
  - Stomatitis [Recovering/Resolving]
  - Oral pain [Recovering/Resolving]
  - Oral herpes [Recovering/Resolving]
  - Food poisoning [Recovering/Resolving]
  - Muscle spasms [Recovering/Resolving]
  - Dehydration [Recovering/Resolving]
  - Aphthous ulcer [Recovering/Resolving]
  - Therapeutic response unexpected [Not Recovered/Not Resolved]
  - Pregnancy [Unknown]
  - Maternal exposure during pregnancy [Unknown]
  - Electrolyte imbalance [Recovering/Resolving]
  - Amenorrhoea [Not Recovered/Not Resolved]
  - Hair growth abnormal [Recovering/Resolving]
  - Attention deficit hyperactivity disorder [Unknown]
  - Product dose omission issue [Unknown]
  - Skin exfoliation [Unknown]
  - Gastrooesophageal reflux disease [Unknown]
  - Trismus [Recovered/Resolved]
  - Confusional state [Recovered/Resolved]
  - Lethargy [Recovered/Resolved]
  - Presyncope [Recovered/Resolved]
  - Rash [Not Recovered/Not Resolved]
  - Diarrhoea [Recovering/Resolving]
  - Dyspepsia [Recovering/Resolving]
  - Dry skin [Unknown]

NARRATIVE: CASE EVENT DATE: 20220101
